FAERS Safety Report 24904663 (Version 1)
Quarter: 2025Q1

REPORT INFORMATION
  Report Type: Spontaneous
  Country: US (occurrence: US)
  Receive Date: 20250130
  Receipt Date: 20250130
  Transmission Date: 20250408
  Serious: No
  Sender: Tarsus Pharmaceuticals
  Company Number: US-TARSUS PHARMACEUTICALS-TSP-US-2024-000575

PATIENT
  Age: 56 Year
  Sex: Female

DRUGS (6)
  1. XDEMVY [Suspect]
     Active Substance: LOTILANER
     Indication: Eyelid margin crusting
     Dosage: 1 DROP, BID
     Route: 065
     Dates: start: 202411, end: 20241117
  2. XDEMVY [Suspect]
     Active Substance: LOTILANER
     Indication: Demodex blepharitis
  3. XDEMVY [Suspect]
     Active Substance: LOTILANER
     Indication: Blepharitis
  4. SYSTANE (HYPROMELLOSE 2910 (4000 MPA.S)) [Concomitant]
     Active Substance: HYPROMELLOSE 2910 (4000 MPA.S)
     Indication: Product used for unknown indication
     Route: 065
  5. METRONIDAZOLE [Concomitant]
     Active Substance: METRONIDAZOLE
     Indication: Product used for unknown indication
     Route: 065
  6. CORTISOL [Concomitant]
     Active Substance: HYDROCORTISONE
     Indication: Ocular hyperaemia
     Route: 065

REACTIONS (7)
  - Vision blurred [Unknown]
  - Condition aggravated [Unknown]
  - Eye pain [Unknown]
  - Eye irritation [Unknown]
  - Eye swelling [Unknown]
  - Ocular discomfort [Unknown]
  - Drug hypersensitivity [Unknown]

NARRATIVE: CASE EVENT DATE: 20241101
